FAERS Safety Report 20871492 (Version 6)
Quarter: 2022Q2

REPORT INFORMATION
  Report Type: Report from Study
  Country: PL (occurrence: PL)
  Receive Date: 20220525
  Receipt Date: 20220615
  Transmission Date: 20220721
  Serious: Yes (Life-Threatening)
  Sender: FDA-Public Use
  Company Number: PL-NOVARTISPH-NVSC2022PL119183

PATIENT
  Age: 16 Year
  Sex: Female
  Weight: 64 kg

DRUGS (9)
  1. CYTARABINE [Suspect]
     Active Substance: CYTARABINE
     Indication: Acute myeloid leukaemia
     Dosage: 1640 MG, BID (2 TIMES PER DAY)
     Route: 042
     Dates: start: 20220408, end: 20220411
  2. CYTARABINE [Suspect]
     Active Substance: CYTARABINE
     Dosage: 5160 MG, BID
     Route: 042
     Dates: start: 20220510, end: 20220512
  3. ETOPOSIDE [Suspect]
     Active Substance: ETOPOSIDE
     Indication: Acute myeloid leukaemia
     Dosage: 172 MG, QD (DAILY)
     Route: 042
     Dates: start: 20220510, end: 20220514
  4. MIDOSTAURIN [Suspect]
     Active Substance: MIDOSTAURIN
     Indication: Acute myeloid leukaemia
     Dosage: 50 MG, BID
     Route: 048
     Dates: start: 20220314, end: 20220327
  5. MIDOSTAURIN [Suspect]
     Active Substance: MIDOSTAURIN
     Dosage: 50 MG, BID
     Route: 048
     Dates: start: 20220415, end: 20220428
  6. MIDOSTAURIN [Suspect]
     Active Substance: MIDOSTAURIN
     Dosage: 50 MG, BID
     Route: 048
     Dates: start: 20220517, end: 20220521
  7. MIDOSTAURIN [Suspect]
     Active Substance: MIDOSTAURIN
     Dosage: 50 MG, BID
     Route: 048
     Dates: start: 20220527
  8. MITOXANTRONE [Suspect]
     Active Substance: MITOXANTRONE HYDROCHLORIDE
     Indication: Acute myeloid leukaemia
     Dosage: 16.4 MG, QD (DAILY)
     Route: 042
     Dates: start: 20220410, end: 20220411
  9. BISEPTOL [Concomitant]
     Active Substance: SULFAMETHOXAZOLE\TRIMETHOPRIM
     Indication: Antifungal prophylaxis
     Dosage: UNK
     Route: 065
     Dates: start: 20220404

REACTIONS (1)
  - Sepsis [Recovering/Resolving]

NARRATIVE: CASE EVENT DATE: 20220521
